FAERS Safety Report 8477123-3 (Version None)
Quarter: 2012Q2

REPORT INFORMATION
  Report Type: 
  Country: None (occurrence: None)
  Receive Date: 20120629
  Receipt Date: 20120625
  Transmission Date: 20120825
  Serious: No
  Sender: FDA-Public Use
  Company Number: US-PFIZER INC-2012076238

PATIENT
  Sex: Female
  Weight: 118 kg

DRUGS (1)
  1. INLYTA [Suspect]
     Indication: RENAL CELL CARCINOMA
     Dosage: 5 MG, 2X/DAY (BID) SINCE 2 WEEKS
     Route: 048
     Dates: start: 20120319, end: 20120329

REACTIONS (2)
  - HEADACHE [None]
  - INSOMNIA [None]
